FAERS Safety Report 23849567 (Version 1)
Quarter: 2024Q2

REPORT INFORMATION
  Report Type: Spontaneous
  Country: JP (occurrence: JP)
  Receive Date: 20240513
  Receipt Date: 20240513
  Transmission Date: 20240715
  Serious: Yes (Hospitalization, Other)
  Sender: FDA-Public Use
  Company Number: JP-BAYER-2024A053336

PATIENT
  Age: 75 Year
  Sex: Male

DRUGS (5)
  1. NUBEQA [Suspect]
     Active Substance: DAROLUTAMIDE
     Indication: Hormone-refractory prostate cancer
     Dosage: 600 MG PER ONCE, 2 TIMES AFTER MEALS PER DAY
     Route: 048
     Dates: start: 20230124, end: 20240313
  2. AMLODIPINE [Suspect]
     Active Substance: AMLODIPINE BESYLATE
     Indication: Hypertension
     Dosage: UNK
  3. APALUTAMIDE [Concomitant]
     Active Substance: APALUTAMIDE
     Indication: Prostate cancer
     Dosage: UNK
  4. ENZALUTAMIDE [Concomitant]
     Active Substance: ENZALUTAMIDE
     Indication: Prostate cancer
     Dosage: UNK
  5. DOCETAXEL [Concomitant]
     Active Substance: DOCETAXEL\DOCETAXEL ANHYDROUS
     Indication: Prostate cancer
     Dosage: UNK

REACTIONS (3)
  - Myocardial infarction [Recovering/Resolving]
  - Blood creatine phosphokinase MB increased [Recovering/Resolving]
  - Troponin I increased [Recovering/Resolving]

NARRATIVE: CASE EVENT DATE: 20240301
